FAERS Safety Report 15655213 (Version 1)
Quarter: 2018Q4

REPORT INFORMATION
  Report Type: Spontaneous
  Country: ES (occurrence: ES)
  Receive Date: 20181126
  Receipt Date: 20181126
  Transmission Date: 20190205
  Serious: No
  Sender: FDA-Public Use
  Company Number: ES-ELI_LILLY_AND_COMPANY-ES201811009582

PATIENT
  Age: 46 Year
  Sex: Male

DRUGS (1)
  1. OLANZAPINE 5MG [Suspect]
     Active Substance: OLANZAPINE
     Indication: PARANOIA
     Dosage: 5 MG, DAILY
     Route: 048
     Dates: start: 20181010, end: 20181112

REACTIONS (1)
  - Epistaxis [Unknown]

NARRATIVE: CASE EVENT DATE: 20181105
